FAERS Safety Report 6811079-1 (Version None)
Quarter: 2010Q2

REPORT INFORMATION
  Report Type: 
  Country: None (occurrence: None)
  Receive Date: 20100630
  Receipt Date: 20090617
  Transmission Date: 20101027
  Serious: No
  Sender: FDA-Public Use
  Company Number: US-PFIZER INC-2009201597

PATIENT
  Sex: Female
  Weight: 70.3 kg

DRUGS (2)
  1. ESTRING [Suspect]
     Indication: VAGINAL DISORDER
     Dates: start: 20090201, end: 20090101
  2. PREMARIN [Concomitant]

REACTIONS (2)
  - ABDOMINAL DISTENSION [None]
  - NAUSEA [None]
